FAERS Safety Report 13261886 (Version 1)
Quarter: 2017Q1

REPORT INFORMATION
  Report Type: Spontaneous
  Country: US (occurrence: US)
  Receive Date: 20170222
  Receipt Date: 20170222
  Transmission Date: 20170428
  Serious: Yes (Other)
  Sender: FDA-Public Use
  Company Number: US-TEVA-740460USA

PATIENT
  Sex: Female

DRUGS (3)
  1. MORPHINE [Concomitant]
     Active Substance: MORPHINE
     Indication: CANCER PAIN
  2. FENTORA [Suspect]
     Active Substance: FENTANYL CITRATE
     Indication: CANCER PAIN
     Dosage: 3600 MILLIGRAM DAILY;
     Route: 065
  3. OXYCODONE [Concomitant]
     Active Substance: OXYCODONE
     Indication: CANCER PAIN

REACTIONS (4)
  - Drug dose omission [Unknown]
  - Hyperhidrosis [Unknown]
  - Malaise [Unknown]
  - Monoplegia [Unknown]

NARRATIVE: CASE EVENT DATE: 20170213
